FAERS Safety Report 22595846 (Version 2)
Quarter: 2023Q2

REPORT INFORMATION
  Report Type: Spontaneous
  Country: US (occurrence: US)
  Receive Date: 20230613
  Receipt Date: 20230619
  Transmission Date: 20230722
  Serious: No
  Sender: FDA-Public Use
  Company Number: US-Calliditas-2023CAL00533

PATIENT
  Age: 55 Year
  Sex: Female

DRUGS (1)
  1. TARPEYO [Suspect]
     Active Substance: BUDESONIDE
     Indication: Haematuria
     Dosage: 16 MG (4 MG CAPSULE) ONCE DAILY
     Route: 048
     Dates: start: 20230516, end: 20230615

REACTIONS (3)
  - Muscle spasms [Unknown]
  - Prescribed underdose [Unknown]
  - Rash [Unknown]
